FAERS Safety Report 12741564 (Version 1)
Quarter: 2016Q3

REPORT INFORMATION
  Report Type: Spontaneous
  Country: US (occurrence: US)
  Receive Date: 20160913
  Receipt Date: 20160913
  Transmission Date: 20161109
  Serious: No
  Sender: FDA-Public Use
  Company Number: None

PATIENT
  Age: 80 Year
  Sex: Female
  Weight: 49.9 kg

DRUGS (8)
  1. COLONAZEPAM [Concomitant]
  2. ZOLPIDEM [Concomitant]
     Active Substance: ZOLPIDEM\ZOLPIDEM TARTRATE
  3. GABAPENTIN. [Concomitant]
     Active Substance: GABAPENTIN
  4. EYE DROPS [Concomitant]
     Active Substance: TETRAHYDROZOLINE HYDROCHLORIDE
  5. WARFRIN [Concomitant]
  6. CLINDAMYCIN 150MG-MFG RANBAXY-INTERCHANGE FOR CLECOCIN 150MG CAPSULES [Suspect]
     Active Substance: CLINDAMYCIN\CLINDAMYCIN PHOSPHATE
     Indication: ENDODONTIC PROCEDURE
     Dates: start: 20160809, end: 20160811
  7. TYLENOL [Concomitant]
     Active Substance: ACETAMINOPHEN
  8. CLINDAMYCIN 150MG-MFG RANBAXY-INTERCHANGE FOR CLECOCIN 150MG CAPSULES [Suspect]
     Active Substance: CLINDAMYCIN\CLINDAMYCIN PHOSPHATE
     Indication: PAIN
     Dates: start: 20160809, end: 20160811

REACTIONS (7)
  - Swollen tongue [None]
  - Hypoaesthesia [None]
  - Heart rate increased [None]
  - Pharyngeal oedema [None]
  - Muscle spasms [None]
  - Tremor [None]
  - Drug ineffective [None]

NARRATIVE: CASE EVENT DATE: 20160809
